FAERS Safety Report 6271371-9 (Version None)
Quarter: 2009Q3

REPORT INFORMATION
  Report Type: 
  Country: None (occurrence: None)
  Receive Date: 20090715
  Receipt Date: 20090715
  Transmission Date: 20100115
  Serious: Yes (Life-Threatening, Hospitalization)
  Sender: FDA-Public Use
  Company Number: None

PATIENT
  Age: 71 Year
  Sex: Male

DRUGS (2)
  1. MORPHINE [Suspect]
     Indication: PAIN
     Dosage: BID PO
     Route: 048
     Dates: start: 20090616, end: 20090629
  2. MORPHINE [Suspect]
     Dosage: PRN PO
     Route: 048
     Dates: start: 20090619, end: 20090629

REACTIONS (4)
  - CONFUSIONAL STATE [None]
  - LETHARGY [None]
  - SEDATION [None]
  - WOUND SECRETION [None]
